FAERS Safety Report 21754809 (Version 3)
Quarter: 2023Q1

REPORT INFORMATION
  Report Type: Spontaneous
  Country: US (occurrence: US)
  Receive Date: 20221220
  Receipt Date: 20230124
  Transmission Date: 20230418
  Serious: No
  Sender: FDA-Public Use
  Company Number: US-PFIZER INC-202201375290

PATIENT
  Age: 63 Year
  Sex: Female
  Weight: 69.4 kg

DRUGS (3)
  1. VYNDAQEL [Suspect]
     Active Substance: TAFAMIDIS MEGLUMINE
     Indication: Cardiac disorder
     Dosage: 20 MG
     Dates: start: 2020
  2. VYNDAQEL [Suspect]
     Active Substance: TAFAMIDIS MEGLUMINE
     Dosage: 20 MG, 1X/DAY
     Dates: start: 2021, end: 20221103
  3. VYNDAQEL [Suspect]
     Active Substance: TAFAMIDIS MEGLUMINE
     Dosage: UNK, 1X/DAY
     Dates: end: 202210

REACTIONS (5)
  - Off label use [Unknown]
  - Gait disturbance [Not Recovered/Not Resolved]
  - Weight decreased [Unknown]
  - Fluid retention [Unknown]
  - Swelling [Unknown]

NARRATIVE: CASE EVENT DATE: 20210101
